FAERS Safety Report 21609544 (Version 3)
Quarter: 2022Q4

REPORT INFORMATION
  Report Type: Spontaneous
  Country: SG (occurrence: None)
  Receive Date: 20221117
  Receipt Date: 20221209
  Transmission Date: 20230113
  Serious: Yes (Hospitalization)
  Sender: FDA-Public Use
  Company Number: 2022A372908

PATIENT
  Sex: Female
  Weight: 46.9 kg

DRUGS (3)
  1. DAPAGLIFLOZIN [Suspect]
     Active Substance: DAPAGLIFLOZIN
     Indication: Diabetes mellitus
     Route: 048
     Dates: start: 20221006, end: 20221109
  2. GLIPIZIDE [Concomitant]
     Active Substance: GLIPIZIDE
  3. METFORMIN [Concomitant]
     Active Substance: METFORMIN HYDROCHLORIDE

REACTIONS (6)
  - Gastric disorder [Unknown]
  - Abdominal distension [Unknown]
  - Insomnia [Unknown]
  - Urinary tract infection [Unknown]
  - Hypernatraemia [Unknown]
  - Hyponatraemia [Unknown]
